FAERS Safety Report 6293336-3 (Version None)
Quarter: 2009Q3

REPORT INFORMATION
  Report Type: 
  Country: None (occurrence: None)
  Receive Date: 20090731
  Receipt Date: 20090723
  Transmission Date: 20100115
  Serious: Yes (Other)
  Sender: FDA-Public Use
  Company Number: PHHY2009BR30750

PATIENT
  Sex: Female
  Weight: 62 kg

DRUGS (1)
  1. EXELON [Suspect]
     Indication: DEMENTIA ALZHEIMER'S TYPE
     Dosage: 18MG/10CM2, 1 PATCH PER DAY
     Route: 062
     Dates: start: 20090702

REACTIONS (2)
  - ANEURYSM [None]
  - COUGH [None]
